FAERS Safety Report 14464431 (Version 1)
Quarter: 2018Q1

REPORT INFORMATION
  Report Type: Spontaneous
  Country: FR (occurrence: FR)
  Receive Date: 20180130
  Receipt Date: 20180130
  Transmission Date: 20180509
  Serious: Yes (Other)
  Sender: FDA-Public Use
  Company Number: FR-MERCK KGAA-2041120

PATIENT
  Age: 78 Year
  Sex: Female
  Weight: 72 kg

DRUGS (8)
  1. LORMETAZEPAM ARROW [Concomitant]
     Route: 048
  2. NOVOTHYROX [Suspect]
     Active Substance: LEVOTHYROXINE SODIUM
     Indication: HYPOTHYROIDISM
     Route: 048
  3. BUSPIRONE SANDOZ [Concomitant]
     Active Substance: BUSPIRONE HYDROCHLORIDE
     Route: 048
  4. QUESTRAN [Suspect]
     Active Substance: CHOLESTYRAMINE
     Route: 048
     Dates: end: 20171018
  5. ALPRAZOLAM MYLAN [Concomitant]
     Active Substance: ALPRAZOLAM
     Route: 048
  6. TAHOR [Concomitant]
     Active Substance: ATORVASTATIN CALCIUM
     Route: 048
  7. ESCITALOPRAM ARROW [Concomitant]
     Active Substance: ESCITALOPRAM OXALATE
     Route: 048
  8. PAROXETINE ARROW [Concomitant]
     Active Substance: PAROXETINE
     Route: 048

REACTIONS (2)
  - Drug interaction [None]
  - Blood thyroid stimulating hormone increased [Recovered/Resolved]

NARRATIVE: CASE EVENT DATE: 20171017
